FAERS Safety Report 23939488 (Version 1)
Quarter: 2024Q2

REPORT INFORMATION
  Report Type: Report from Study
  Country: US (occurrence: US)
  Receive Date: 20240605
  Receipt Date: 20240605
  Transmission Date: 20240716
  Serious: Yes (Other)
  Sender: FDA-Public Use
  Company Number: US-JAZZ PHARMACEUTICALS-2022-US-029452

PATIENT
  Age: 30 Year
  Sex: Female

DRUGS (26)
  1. XYWAV [Suspect]
     Active Substance: CALCIUM OXYBATE\MAGNESIUM OXYBATE\POTASSIUM OXYBATE\SODIUM OXYBATE
     Indication: Hypersomnia
     Dosage: 2.5 GRAM
  2. XYWAV [Suspect]
     Active Substance: CALCIUM OXYBATE\MAGNESIUM OXYBATE\POTASSIUM OXYBATE\SODIUM OXYBATE
     Dosage: 3 GRAM, BID, FIRST DOSE DILUTED IN ? CUP (60ML) OF WATER AT BEDTIME 2ND DOSE 2+1/2 TO 4 HOURS LATER
     Route: 048
     Dates: start: 20221201
  3. XYWAV [Suspect]
     Active Substance: CALCIUM OXYBATE\MAGNESIUM OXYBATE\POTASSIUM OXYBATE\SODIUM OXYBATE
     Dosage: 4 GRAM AT BEDTIME AND 3 GRAMS 2.5 TO 4 HOURS LATER
  4. XYWAV [Suspect]
     Active Substance: CALCIUM OXYBATE\MAGNESIUM OXYBATE\POTASSIUM OXYBATE\SODIUM OXYBATE
     Dosage: UNK
  5. XYWAV [Suspect]
     Active Substance: CALCIUM OXYBATE\MAGNESIUM OXYBATE\POTASSIUM OXYBATE\SODIUM OXYBATE
     Dosage: UNK
  6. XYWAV [Suspect]
     Active Substance: CALCIUM OXYBATE\MAGNESIUM OXYBATE\POTASSIUM OXYBATE\SODIUM OXYBATE
     Dosage: 3 GRAM, BID
  7. XYWAV [Suspect]
     Active Substance: CALCIUM OXYBATE\MAGNESIUM OXYBATE\POTASSIUM OXYBATE\SODIUM OXYBATE
     Dosage: 2.5 GRAM AND 3 GRAM
  8. XYWAV [Suspect]
     Active Substance: CALCIUM OXYBATE\MAGNESIUM OXYBATE\POTASSIUM OXYBATE\SODIUM OXYBATE
     Dosage: 3 G HS AND 2.5 G TAKEN 2.5-4 HR LATER
  9. METHYLPREDNISOLONE [Concomitant]
     Active Substance: METHYLPREDNISOLONE
     Dosage: UNK
     Dates: start: 20220807
  10. FAMOTIDINE [Concomitant]
     Active Substance: FAMOTIDINE
     Dosage: UNK
     Dates: start: 20220911
  11. COLCHICINE [Concomitant]
     Active Substance: COLCHICINE
  12. CORLANOR [Concomitant]
     Active Substance: IVABRADINE HYDROCHLORIDE
  13. CROMOLYN SODIUM [Concomitant]
     Active Substance: CROMOLYN SODIUM
  14. DICLOFENAC SODIUM [Concomitant]
     Active Substance: DICLOFENAC\DICLOFENAC SODIUM
  15. FENTANYL CITRATE [Concomitant]
     Active Substance: FENTANYL CITRATE
  16. HYDROXYCHLOROQUINE SULFATE [Concomitant]
     Active Substance: HYDROXYCHLOROQUINE SULFATE
  17. LEVSIN [Concomitant]
     Active Substance: HYOSCYAMINE SULFATE
  18. MIDODRINE HYDROCHLORIDE [Concomitant]
     Active Substance: MIDODRINE HYDROCHLORIDE
  19. MIRTAZAPINE [Concomitant]
     Active Substance: MIRTAZAPINE
  20. ONDANSETRON [Concomitant]
     Active Substance: ONDANSETRON
  21. OXYCODONE HYDROCHLORIDE [Concomitant]
     Active Substance: OXYCODONE HYDROCHLORIDE
  22. PREPARATION H [HYDROCORTISONE] [Concomitant]
  23. AZO [Concomitant]
     Active Substance: PHENAZOPYRIDINE HYDROCHLORIDE
  24. VALACYCLOVIR HYDROCHLORIDE [Concomitant]
     Active Substance: VALACYCLOVIR HYDROCHLORIDE
  25. XIFAXAN [Concomitant]
     Active Substance: RIFAXIMIN
  26. XOPENEX HFA [Concomitant]
     Active Substance: LEVALBUTEROL TARTRATE

REACTIONS (24)
  - Pericarditis [Recovered/Resolved]
  - Weight decreased [Unknown]
  - Feeling abnormal [Unknown]
  - COVID-19 [Unknown]
  - Haemorrhoids [Unknown]
  - Insomnia [Unknown]
  - Pollakiuria [Unknown]
  - Headache [Unknown]
  - Nausea [Unknown]
  - Sleep talking [Unknown]
  - Bruxism [Unknown]
  - Nightmare [Unknown]
  - Sleep terror [Unknown]
  - Cough [Unknown]
  - Scoliosis [Unknown]
  - Sinusitis [Unknown]
  - Pleurisy [Unknown]
  - Pain [Unknown]
  - Influenza [Unknown]
  - Bundle branch block [Unknown]
  - Enteritis [Unknown]
  - Bronchitis [Recovered/Resolved]
  - Product administration interrupted [Unknown]
  - Intentional product use issue [Unknown]

NARRATIVE: CASE EVENT DATE: 20240530
